FAERS Safety Report 5135718-9 (Version None)
Quarter: 2006Q4

REPORT INFORMATION
  Report Type: 
  Country: None (occurrence: None)
  Receive Date: 20061020
  Receipt Date: 20061010
  Transmission Date: 20070319
  Serious: Yes (Other)
  Sender: FDA-Public Use
  Company Number: 2006125198

PATIENT
  Sex: Female
  Weight: 88.4514 kg

DRUGS (9)
  1. LYRICA [Suspect]
     Indication: NEUROPATHY PERIPHERAL
  2. KEPPRA [Concomitant]
  3. SYNTHROID [Concomitant]
  4. TOPROL-XL [Concomitant]
  5. VITAMIN E [Concomitant]
  6. CALCIUM [Concomitant]
  7. ASPIRIN [Concomitant]
  8. VITAMIN CAP [Concomitant]
  9. IBUPROFEN [Concomitant]

REACTIONS (3)
  - MACULOPATHY [None]
  - VISION BLURRED [None]
  - VISUAL FIELD DEFECT [None]
